FAERS Safety Report 11025294 (Version 1)
Quarter: 2015Q2

REPORT INFORMATION
  Report Type: Other
  Country: IT (occurrence: FR)
  Receive Date: 20150414
  Receipt Date: 20150414
  Transmission Date: 20150821
  Serious: Yes (Hospitalization)
  Sender: FDA-Public Use
  Company Number: FR-FRI-1000075707

PATIENT
  Age: 69 Year
  Sex: Female

DRUGS (2)
  1. DABIGATRAN [Suspect]
     Active Substance: DABIGATRAN
     Dosage: 2400 MG (16 CAPSULES)
  2. NEBIVOLOL [Suspect]
     Active Substance: NEBIVOLOL
     Dosage: 90 MG (18 TABLETS)

REACTIONS (5)
  - Activated partial thromboplastin time prolonged [None]
  - Tremor [None]
  - Loss of consciousness [Recovered/Resolved]
  - Intentional overdose [Recovered/Resolved]
  - Bradycardia [Recovered/Resolved]
